FAERS Safety Report 19441999 (Version 1)
Quarter: 2021Q2

REPORT INFORMATION
  Report Type: Spontaneous
  Country: DE (occurrence: HR)
  Receive Date: 20210621
  Receipt Date: 20210621
  Transmission Date: 20210717
  Serious: Yes (Other)
  Sender: FDA-Public Use
  Company Number: HR-ELI_LILLY_AND_COMPANY-HR202106009122

PATIENT
  Age: 57 Year
  Sex: Male
  Weight: 50 kg

DRUGS (11)
  1. 5?FU [FLUOROURACIL] [Concomitant]
     Active Substance: FLUOROURACIL
     Indication: HEAD AND NECK CANCER METASTATIC
     Dosage: UNK UNK, WEEKLY (1/W)
  2. PALEXIA [Concomitant]
     Active Substance: TAPENTADOL HYDROCHLORIDE
     Dosage: 100 MG, UNK
  3. ERBITUX [Suspect]
     Active Substance: CETUXIMAB
     Indication: HEAD AND NECK CANCER METASTATIC
     Dosage: UNK UNK, WEEKLY (1/W)
     Route: 065
  4. FENTAGESIC [Concomitant]
     Indication: PAIN
     Dosage: 150 UG, UNK
  5. CISPLATIN. [Concomitant]
     Active Substance: CISPLATIN
     Indication: HEAD AND NECK CANCER METASTATIC
     Dosage: UNK, WEEKLY (1/W)
  6. ANALGIN [FENPIVERINIUM BROMIDE;METAMIZOLE SOD [Concomitant]
     Indication: PAIN
     Dosage: 2 X 2 TABLETS
  7. ZOLEDRONATE [Concomitant]
     Active Substance: ZOLEDRONIC ACID
     Indication: HEAD AND NECK CANCER METASTATIC
     Dosage: UNK, MONTHLY (1/M)
  8. FENTAGESIC [Concomitant]
     Dosage: 75 UG, UNK
  9. FENTAGESIC [Concomitant]
     Dosage: 200 UG, UNK
  10. PALEXIA [Concomitant]
     Active Substance: TAPENTADOL HYDROCHLORIDE
     Indication: PAIN
     Dosage: 50 MG, UNK
  11. KETONAL [KETOPROFEN] [Concomitant]
     Active Substance: KETOPROFEN
     Indication: PAIN
     Dosage: 150 MG, UNK

REACTIONS (2)
  - Haemoglobin decreased [Unknown]
  - Neutropenia [Unknown]
